FAERS Safety Report 13272047 (Version 1)
Quarter: 2017Q1

REPORT INFORMATION
  Report Type: Spontaneous
  Country: US (occurrence: US)
  Receive Date: 20170227
  Receipt Date: 20170227
  Transmission Date: 20170428
  Serious: Yes (Hospitalization)
  Sender: FDA-Public Use
  Company Number: US-IPSEN BIOPHARMACEUTICALS, INC.-2017-01429

PATIENT
  Sex: Female

DRUGS (17)
  1. CRESTOR [Concomitant]
     Active Substance: ROSUVASTATIN CALCIUM
  2. HYDROCORTISONE. [Concomitant]
     Active Substance: HYDROCORTISONE
  3. TOLTERODINE TARTARATE ER [Concomitant]
  4. HYDROCODONE/ACETAMINOPHEN [Concomitant]
     Active Substance: ACETAMINOPHEN\HYDROCODONE
  5. LYRICA [Concomitant]
     Active Substance: PREGABALIN
  6. CHLORTHALIDONE. [Concomitant]
     Active Substance: CHLORTHALIDONE
  7. FUROSEMIDE. [Concomitant]
     Active Substance: FUROSEMIDE
  8. BACLOFEN. [Concomitant]
     Active Substance: BACLOFEN
  9. EPINEPHRINE. [Concomitant]
     Active Substance: EPINEPHRINE
  10. SOMATULINE DEPOT [Suspect]
     Active Substance: LANREOTIDE ACETATE
     Indication: ADRENAL INSUFFICIENCY
     Dosage: 120 MG
     Route: 065
     Dates: start: 20120307
  11. DICLOFENAC SODIUM. [Concomitant]
     Active Substance: DICLOFENAC SODIUM
  12. FENTANYL. [Concomitant]
     Active Substance: FENTANYL
  13. FAMOTIDINE. [Concomitant]
     Active Substance: FAMOTIDINE
  14. METOLAZONE. [Concomitant]
     Active Substance: METOLAZONE
  15. MUPIROCIN. [Concomitant]
     Active Substance: MUPIROCIN
  16. LEVOTHYROXINE SODIUM. [Concomitant]
     Active Substance: LEVOTHYROXINE SODIUM
  17. SOMATULINE DEPOT [Suspect]
     Active Substance: LANREOTIDE ACETATE
     Indication: OFF LABEL USE

REACTIONS (2)
  - Hospitalisation [Not Recovered/Not Resolved]
  - Off label use [Unknown]
